FAERS Safety Report 13098490 (Version 4)
Quarter: 2017Q2

REPORT INFORMATION
  Report Type: Spontaneous
  Country: BR (occurrence: BR)
  Receive Date: 20170109
  Receipt Date: 20170630
  Transmission Date: 20170830
  Serious: Yes (Other)
  Sender: FDA-Public Use
  Company Number: BR-PFIZER INC-2017003502

PATIENT
  Age: 41 Year
  Sex: Female
  Weight: 83 kg

DRUGS (15)
  1. LYRICA [Suspect]
     Active Substance: PREGABALIN
     Indication: SPINAL PAIN
  2. CODEIN [Concomitant]
     Active Substance: CODEINE
     Indication: SPINAL PAIN
  3. PARACETAMOL [Concomitant]
     Active Substance: ACETAMINOPHEN
     Indication: PAIN
     Dosage: 2 DF, 2X/DAY (12 TO 12 HOURS)
     Route: 048
  4. METAMIZOLE [Concomitant]
     Active Substance: METAMIZOLE
     Indication: HEADACHE
  5. RANITIDINE. [Concomitant]
     Active Substance: RANITIDINE
     Indication: GASTROINTESTINAL DISORDER
     Dosage: 2 DF, UNK, AFTER THE COFFEE
     Route: 048
     Dates: start: 2016
  6. METAMIZOLE [Concomitant]
     Active Substance: METAMIZOLE
     Indication: PAIN
     Dosage: 80 TO 100 DROPS
     Route: 048
  7. DIAZEPAM. [Concomitant]
     Active Substance: DIAZEPAM
     Indication: ANXIETY
     Dosage: 2 DF, 1X/DAY, AT NIGHT
     Route: 048
  8. NORTRIPTILINA [Concomitant]
     Indication: DEPRESSION
     Dosage: 2 OF 50 MG DAILY
     Route: 048
  9. LYRICA [Suspect]
     Active Substance: PREGABALIN
     Indication: FIBROMYALGIA
     Dosage: 75 MG, 2X/DAY EVERY 12H
     Route: 048
     Dates: start: 201611, end: 201701
  10. MUSCULARE [Concomitant]
     Dosage: UNK
  11. OMEPRAZOLE. [Concomitant]
     Active Substance: OMEPRAZOLE
  12. SERTRALINE [Concomitant]
     Active Substance: SERTRALINE HYDROCHLORIDE
     Indication: DEPRESSION
     Dosage: 3 OF 50 MG DAILY IN THE MORNING
     Route: 048
  13. DEPAKENE [Concomitant]
     Active Substance: VALPROIC ACID
     Indication: DEPRESSION
     Dosage: 1 DF, 2X/DAY (12 TO 12 HOURS)
     Route: 048
  14. CODEIN [Concomitant]
     Active Substance: CODEINE
     Indication: FIBROMYALGIA
     Dosage: UNK
     Dates: start: 201612, end: 201701
  15. DIPYRONE [Concomitant]
     Active Substance: DIPYRONE

REACTIONS (7)
  - Sepsis [Not Recovered/Not Resolved]
  - Skin discolouration [Recovered/Resolved]
  - Laboratory test abnormal [Not Recovered/Not Resolved]
  - Gamma-glutamyltransferase increased [Not Recovered/Not Resolved]
  - Ovarian cyst [Not Recovered/Not Resolved]
  - Intentional product misuse [Unknown]
  - Drug ineffective [Not Recovered/Not Resolved]

NARRATIVE: CASE EVENT DATE: 201612
